FAERS Safety Report 8885934 (Version 2)
Quarter: 2013Q4

REPORT INFORMATION
  Report Type: Spontaneous
  Country: CN (occurrence: CN)
  Receive Date: 20121105
  Receipt Date: 20131104
  Transmission Date: 20140711
  Serious: Yes (Other)
  Sender: FDA-Public Use
  Company Number: PHHY2012CN100495

PATIENT
  Age: 80 Year
  Sex: Female
  Weight: 65 kg

DRUGS (4)
  1. ACLASTA [Suspect]
     Indication: OSTEOPOROSIS
     Dosage: 5 MG, PER YEAR
     Route: 042
     Dates: start: 20121031, end: 20121031
  2. ACLASTA [Suspect]
     Indication: ARRHYTHMIA
  3. TANSHINON [Concomitant]
     Route: 042
     Dates: start: 20121027, end: 20121102
  4. CALCIUM GLUCONATE [Concomitant]
     Indication: OSTEOPOROSIS
     Route: 042
     Dates: start: 20121027, end: 20121102

REACTIONS (6)
  - Oliguria [Recovered/Resolved]
  - Hypouricaemia [Recovered/Resolved]
  - Pyrexia [Recovered/Resolved]
  - Chills [Recovered/Resolved]
  - Nausea [Recovered/Resolved]
  - Vomiting [Recovered/Resolved]
